FAERS Safety Report 4640327-1 (Version None)
Quarter: 2005Q2

REPORT INFORMATION
  Report Type: 
  Country: None (occurrence: None)
  Receive Date: 20050420
  Receipt Date: 20050207
  Transmission Date: 20051028
  Serious: No
  Sender: FDA-Public Use
  Company Number: US-GLAXOSMITHKLINE-A0544236A

PATIENT
  Age: 54 Year
  Sex: Female

DRUGS (3)
  1. ESKALITH [Suspect]
     Dosage: 450MG AT NIGHT
     Route: 048
  2. DEPAKOTE ER [Concomitant]
     Dosage: 250MG TWICE PER DAY
     Route: 065
     Dates: start: 19941209
  3. LITHIUM [Concomitant]

REACTIONS (1)
  - STOOL ANALYSIS ABNORMAL [None]
